FAERS Safety Report 15367499 (Version 4)
Quarter: 2025Q3

REPORT INFORMATION
  Report Type: Report from Study
  Country: GB (occurrence: GB)
  Receive Date: 20180910
  Receipt Date: 20250826
  Transmission Date: 20251021
  Serious: Yes (Other)
  Sender: NOVARTIS
  Company Number: PHHY2018GB089772

PATIENT
  Age: 62 Year
  Sex: Female

DRUGS (2)
  1. COSENTYX [Suspect]
     Active Substance: SECUKINUMAB
     Indication: Psoriasis
     Dosage: 300 MG, QW (WEEK 0-WEEK 3) (PRE-FILLED PEN)
     Route: 058
     Dates: start: 20180823
  2. COSENTYX [Suspect]
     Active Substance: SECUKINUMAB
     Dosage: 300 MG, QMO (PRE-FILLED PEN)
     Route: 058

REACTIONS (8)
  - Pruritus [Unknown]
  - Depressed mood [Unknown]
  - Tearfulness [Unknown]
  - Lower respiratory tract infection [Unknown]
  - Malaise [Recovered/Resolved]
  - Inappropriate schedule of product administration [Unknown]
  - Product use issue [Unknown]
  - Product dose omission issue [Unknown]
